FAERS Safety Report 7481252-0 (Version None)
Quarter: 2011Q2

REPORT INFORMATION
  Report Type: 
  Country: None (occurrence: None)
  Receive Date: 20110506
  Receipt Date: 20110425
  Transmission Date: 20111010
  Serious: Yes (Other)
  Sender: FDA-Public Use
  Company Number: 2011SP018650

PATIENT
  Age: 48 Year
  Sex: Male

DRUGS (3)
  1. PREDNISONE [Concomitant]
  2. PULMICORT [Concomitant]
  3. PROVENTIL-HFA [Suspect]
     Indication: ASTHMA
     Dosage: 120 MCG;QID;INH
     Route: 055
     Dates: end: 20100301

REACTIONS (10)
  - DYSPNOEA [None]
  - EXPIRED DRUG ADMINISTERED [None]
  - DRUG DISPENSING ERROR [None]
  - DRUG INEFFECTIVE [None]
  - SWELLING FACE [None]
  - LIP SWELLING [None]
  - VISUAL IMPAIRMENT [None]
  - RASH [None]
  - OEDEMA PERIPHERAL [None]
  - HEADACHE [None]
